FAERS Safety Report 4476223-2 (Version None)
Quarter: 2004Q3

REPORT INFORMATION
  Report Type: 
  Country: None (occurrence: None)
  Receive Date: 20040923
  Receipt Date: 20040813
  Transmission Date: 20050211
  Serious: No
  Sender: FDA-Public Use
  Company Number: USA040772989

PATIENT
  Age: 82 Year
  Sex: Female
  Weight: 59 kg

DRUGS (1)
  1. FORTEO [Suspect]
     Indication: OSTEOPOROSIS
     Dosage: 20 UG/1 DAY
     Dates: start: 20040701

REACTIONS (6)
  - ABDOMINAL PAIN [None]
  - BACK PAIN [None]
  - CONSTIPATION [None]
  - FATIGUE [None]
  - HEADACHE [None]
  - RECTAL HAEMORRHAGE [None]
